FAERS Safety Report 8866287 (Version 1)
Quarter: 2012Q4

REPORT INFORMATION
  Report Type: 
  Country: GR (occurrence: GR)
  Receive Date: 20121025
  Receipt Date: 20121025
  Transmission Date: 20130627
  Serious: Yes (Death, Other)
  Sender: FDA-Public Use
  Company Number: GR-BAYER-2012-109922

PATIENT
  Age: 61 Year
  Sex: Male

DRUGS (4)
  1. NEXAVAR [Suspect]
     Indication: METASTATIC RENAL CELL CARCINOMA
     Dosage: UNK
     Route: 048
     Dates: start: 200906
  2. BEVACIZUMAB [Suspect]
     Indication: METASTATIC RENAL CELL CARCINOMA
     Dosage: 200 mg, OW
     Dates: start: 200906
  3. BLOOD AND RELATED PRODUCTS [Concomitant]
     Indication: ANEMIA
  4. ERYTHROPOIETIN [Concomitant]
     Indication: ANEMIA

REACTIONS (3)
  - Metastatic renal cell carcinoma [Not Recovered/Not Resolved]
  - Anaphylactic shock [Fatal]
  - Anaemia [Not Recovered/Not Resolved]
